FAERS Safety Report 15244239 (Version 1)
Quarter: 2018Q3

REPORT INFORMATION
  Report Type: Spontaneous
  Country: US (occurrence: US)
  Receive Date: 20180712
  Receipt Date: 20180712
  Transmission Date: 20181010
  Serious: Yes (Death, Other)
  Sender: FDA-Public Use
  Company Number: None

PATIENT
  Age: 69 Year
  Sex: Male
  Weight: 85.5 kg

DRUGS (16)
  1. VALPROIC ACID. [Concomitant]
     Active Substance: VALPROIC ACID
  2. ZESTORETIC [Concomitant]
     Active Substance: HYDROCHLOROTHIAZIDE\LISINOPRIL
  3. EFFEXOR XR [Concomitant]
     Active Substance: VENLAFAXINE HYDROCHLORIDE
  4. VITAMIN C [Concomitant]
     Active Substance: ASCORBIC ACID
  5. LATANOPROST. [Concomitant]
     Active Substance: LATANOPROST
  6. LEVOTHYROXINE. [Concomitant]
     Active Substance: LEVOTHYROXINE
  7. PANTOPRAZOLE [Concomitant]
     Active Substance: PANTOPRAZOLE
  8. METFORMIN [Concomitant]
     Active Substance: METFORMIN HYDROCHLORIDE
  9. OMEGA 3 [Concomitant]
     Active Substance: OMEGA-3 FATTY ACIDS
  10. ZYPREXA [Concomitant]
     Active Substance: OLANZAPINE
  11. LANTUS [Concomitant]
     Active Substance: INSULIN GLARGINE
  12. SYMBICORT [Concomitant]
     Active Substance: BUDESONIDE\FORMOTEROL FUMARATE DIHYDRATE
  13. FENOFIBRATE. [Concomitant]
     Active Substance: FENOFIBRATE
  14. HUMULIN R [Concomitant]
     Active Substance: INSULIN HUMAN
  15. MULTIVITAMINS [Concomitant]
     Active Substance: VITAMINS
  16. TARCEVA [Suspect]
     Active Substance: ERLOTINIB HYDROCHLORIDE
     Indication: LUNG NEOPLASM MALIGNANT
     Route: 048
     Dates: start: 20180615, end: 20180628

REACTIONS (1)
  - Disease progression [None]
